FAERS Safety Report 17375178 (Version 2)
Quarter: 2020Q1

REPORT INFORMATION
  Report Type: Spontaneous
  Country: JP (occurrence: JP)
  Receive Date: 20200205
  Receipt Date: 20200221
  Transmission Date: 20200409
  Serious: Yes (Other)
  Sender: FDA-Public Use
  Company Number: JP-GILEAD-2020-0449560

PATIENT
  Age: 55 Year
  Sex: Male

DRUGS (5)
  1. DEPAS [ETIZOLAM] [Concomitant]
     Active Substance: ETIZOLAM
  2. FAMOTIDINE. [Concomitant]
     Active Substance: FAMOTIDINE
  3. ADEFOVIR DIPIVOXIL. [Suspect]
     Active Substance: ADEFOVIR DIPIVOXIL
     Indication: PRODUCT USED FOR UNKNOWN INDICATION
     Dosage: UNK
     Route: 065
  4. LOPERAMIDE [Concomitant]
     Active Substance: LOPERAMIDE
  5. VEMLIDY [Suspect]
     Active Substance: TENOFOVIR ALAFENAMIDE FUMARATE
     Indication: PRODUCT USED FOR UNKNOWN INDICATION
     Dosage: UNK
     Route: 048
     Dates: start: 201806

REACTIONS (3)
  - Drug ineffective [Unknown]
  - Hepatitis B DNA increased [Unknown]
  - Hepatic function abnormal [Unknown]
